FAERS Safety Report 21881892 (Version 2)
Quarter: 2023Q1

REPORT INFORMATION
  Report Type: Spontaneous
  Country: JP (occurrence: JP)
  Receive Date: 20230119
  Receipt Date: 20230125
  Transmission Date: 20230417
  Serious: Yes (Death)
  Sender: FDA-Public Use
  Company Number: JP-MTPC-MTPC2023-0000999

PATIENT
  Age: 84 Year
  Sex: Female

DRUGS (3)
  1. REMICADE [Suspect]
     Active Substance: INFLIXIMAB
     Indication: Rheumatoid arthritis
     Dosage: UNK
     Route: 041
  2. METHOTREXATE [Suspect]
     Active Substance: METHOTREXATE
     Indication: Rheumatoid arthritis
     Dosage: 8 MILLIGRAM, 1/WEEK
     Route: 048
  3. ISONIAZID [Concomitant]
     Active Substance: ISONIAZID
     Route: 065

REACTIONS (3)
  - Epstein-Barr virus infection reactivation [Fatal]
  - Haemophagocytic lymphohistiocytosis [Fatal]
  - Disseminated tuberculosis [Fatal]
